FAERS Safety Report 11899251 (Version 1)
Quarter: 2016Q1

REPORT INFORMATION
  Report Type: Spontaneous
  Country: GB (occurrence: GB)
  Receive Date: 20160108
  Receipt Date: 20160108
  Transmission Date: 20160526
  Serious: Yes (Other)
  Sender: FDA-Public Use
  Company Number: GB-BRISTOL-MYERS SQUIBB COMPANY-BMS-2015-093050

PATIENT
  Age: 77 Year
  Sex: Female

DRUGS (1)
  1. KENALOG [Suspect]
     Active Substance: TRIAMCINOLONE ACETONIDE
     Indication: CYSTOID MACULAR OEDEMA
     Route: 065

REACTIONS (4)
  - Incorrect route of drug administration [Unknown]
  - Drug administration error [Unknown]
  - Blindness [Recovering/Resolving]
  - Ocular vascular disorder [Unknown]
